FAERS Safety Report 6597700-4 (Version None)
Quarter: 2010Q1

REPORT INFORMATION
  Report Type: 
  Country: None (occurrence: None)
  Receive Date: 20100223
  Receipt Date: 20100215
  Transmission Date: 20100710
  Serious: Yes (Other)
  Sender: FDA-Public Use
  Company Number: US-GILEAD-2010-0027099

PATIENT
  Sex: Female
  Weight: 55.388 kg

DRUGS (12)
  1. LETAIRIS [Suspect]
     Indication: PULMONARY ARTERIAL HYPERTENSION
     Route: 048
     Dates: start: 20080617
  2. REVATIO [Concomitant]
  3. FLEXERIL [Concomitant]
  4. ALDACTONE [Concomitant]
  5. LASIX [Concomitant]
  6. DARVOCET-N 100 [Concomitant]
  7. XANAX [Concomitant]
  8. AMBIEN [Concomitant]
  9. PAXIL [Concomitant]
  10. JANUVIA [Concomitant]
  11. METFORMIN [Concomitant]
  12. PRAVASTATIN [Concomitant]

REACTIONS (1)
  - PULMONARY ARTERIAL PRESSURE INCREASED [None]
